FAERS Safety Report 7648876-9 (Version None)
Quarter: 2011Q3

REPORT INFORMATION
  Report Type: 
  Country: None (occurrence: None)
  Receive Date: 20110801
  Receipt Date: 20110727
  Transmission Date: 20111222
  Serious: Yes (Death, Other)
  Sender: FDA-Public Use
  Company Number: US-AMGEN-QUU430428

PATIENT
  Age: 29 Year
  Sex: Female

DRUGS (1)
  1. NPLATE [Suspect]
     Indication: NEURILEMMOMA MALIGNANT
     Dosage: UNK UNK, UNK
     Dates: start: 20090313

REACTIONS (3)
  - DEATH [None]
  - DRUG INEFFECTIVE [None]
  - SURGERY [None]
